FAERS Safety Report 5817242-0 (Version None)
Quarter: 2008Q3

REPORT INFORMATION
  Report Type: 
  Country: None (occurrence: None)
  Receive Date: 20080722
  Receipt Date: 20080721
  Transmission Date: 20090109
  Serious: Yes (Other)
  Sender: FDA-Public Use
  Company Number: A0730372A

PATIENT
  Age: 61 Year
  Sex: Female

DRUGS (2)
  1. ALLI [Suspect]
     Indication: DRUG USE FOR UNKNOWN INDICATION
     Route: 048
     Dates: start: 20080101, end: 20080520
  2. NO CONCURRENT MEDICATION [Concomitant]

REACTIONS (1)
  - MALIGNANT FIBROUS HISTIOCYTOMA [None]
